FAERS Safety Report 4381158-X (Version None)
Quarter: 2004Q2

REPORT INFORMATION
  Report Type: 
  Country: None (occurrence: None)
  Receive Date: 20040617
  Receipt Date: 20040617
  Transmission Date: 20050107
  Serious: Yes (Hospitalization, Disabling)
  Sender: FDA-Public Use
  Company Number: None

PATIENT
  Age: 72 Year
  Sex: Male
  Weight: 105.6881 kg

DRUGS (3)
  1. UROXATRAL [Suspect]
     Indication: URINARY HESITATION
     Dosage: ONE PO Q DAY
     Route: 048
     Dates: start: 20040601
  2. ZESTRIL [Concomitant]
  3. ASPIRIN [Concomitant]

REACTIONS (3)
  - ANKLE FRACTURE [None]
  - HYPOTENSION [None]
  - SYNCOPE [None]
